FAERS Safety Report 9717753 (Version 2)
Quarter: 2014Q1

REPORT INFORMATION
  Report Type: Spontaneous
  Country: US (occurrence: US)
  Receive Date: 20131127
  Receipt Date: 20140210
  Transmission Date: 20141002
  Serious: Yes (Hospitalization)
  Sender: FDA-Public Use
  Company Number: US-GLAXOSMITHKLINE-A1051066A

PATIENT
  Age: 83 Year
  Sex: Male

DRUGS (10)
  1. VOTRIENT [Suspect]
     Indication: RENAL CANCER
     Dosage: 4TAB PER DAY
     Route: 048
     Dates: start: 20130815, end: 20131121
  2. POTASSIUM [Concomitant]
  3. HYDRALAZINE [Concomitant]
  4. NASONEX [Concomitant]
  5. OMEPRAZOLE [Concomitant]
  6. COUMADIN [Concomitant]
  7. ALLOPURINOL [Concomitant]
  8. TERAZOSIN [Concomitant]
  9. ASPIRIN [Concomitant]
  10. METOPROLOL [Concomitant]

REACTIONS (1)
  - Investigation [Recovered/Resolved]
